FAERS Safety Report 23915446 (Version 1)
Quarter: 2024Q2

REPORT INFORMATION
  Report Type: Other
  Country: JP (occurrence: JP)
  Receive Date: 20240529
  Receipt Date: 20240529
  Transmission Date: 20240716
  Serious: Yes (Hospitalization)
  Sender: FDA-Public Use
  Company Number: JP-B.Braun Medical Inc.-2157536

PATIENT
  Age: 46 Year
  Sex: Female

DRUGS (6)
  1. DEXTROSE [Suspect]
     Active Substance: DEXTROSE\DEXTROSE MONOHYDRATE
     Indication: Electrolyte imbalance
  2. TRICHLORMETHIAZIDE [Suspect]
     Active Substance: TRICHLORMETHIAZIDE
  3. LEVOMEPROMAZINE [Concomitant]
     Active Substance: LEVOMEPROMAZINE
  4. LITHIUM [Concomitant]
     Active Substance: LITHIUM
  5. CELECOXIB [Suspect]
     Active Substance: CELECOXIB
  6. DESMOPRESSIN [Suspect]
     Active Substance: DESMOPRESSIN

REACTIONS (1)
  - Drug dependence [Recovered/Resolved]
